FAERS Safety Report 18408548 (Version 1)
Quarter: 2020Q4

REPORT INFORMATION
  Report Type: Spontaneous
  Country: JP (occurrence: JP)
  Receive Date: 20201021
  Receipt Date: 20201021
  Transmission Date: 20210114
  Serious: Yes (Other)
  Sender: FDA-Public Use
  Company Number: JP-GUERBET-JP-20200170

PATIENT
  Age: 59 Year
  Sex: Female

DRUGS (5)
  1. SOSEGON [Concomitant]
     Active Substance: PENTAZOCINE
     Indication: PAIN PROPHYLAXIS
     Route: 042
  2. DEHYDRATED ETHANOL [Concomitant]
     Active Substance: ALCOHOL
     Indication: SCLEROTHERAPY
     Dosage: DILUTED TO 70% WITH LIPIODOL
     Route: 042
     Dates: start: 201206, end: 201206
  3. DEHYDRATED ETHANOL [Concomitant]
     Active Substance: ALCOHOL
     Dosage: INJECTED INTO THE LESION ON THE CHIN
     Route: 042
  4. DEHYDRATED ETHANOL [Concomitant]
     Active Substance: ALCOHOL
     Dosage: 2ML WAS INJECTED RESPECTIVELY INTO EACH OF THE LESIONS IN THE LOWER LIP, RIGHT UPPER LIP AND MIDDLE
  5. LIPIODOL [Suspect]
     Active Substance: ETHIODIZED OIL
     Indication: SCLEROTHERAPY
     Route: 042
     Dates: start: 201206, end: 201206

REACTIONS (4)
  - Pain [Recovered/Resolved]
  - Skin necrosis [Recovered/Resolved]
  - Soft tissue swelling [Recovered/Resolved]
  - Product use in unapproved indication [Recovered/Resolved]
